FAERS Safety Report 9626659 (Version 2)
Quarter: 2013Q4

REPORT INFORMATION
  Report Type: Spontaneous
  Country: DE (occurrence: DE)
  Receive Date: 20131016
  Receipt Date: 20131029
  Transmission Date: 20140711
  Serious: Yes (Congenital Anomaly, Other)
  Sender: FDA-Public Use
  Company Number: DE-PFIZER INC-2013291357

PATIENT
  Sex: Female
  Weight: 1.87 kg

DRUGS (6)
  1. RAMIPRIL [Suspect]
     Indication: HYPERTENSION
     Dosage: 0. - 4.5. GESTATIONAL WEEK
     Route: 064
     Dates: start: 20090820, end: 20090922
  2. OBSIDAN [Suspect]
     Indication: HYPERTENSION
     Dosage: 25 MG, 2X/DAY; 0. - 33.4. GESTATIONAL WEEK
     Route: 064
     Dates: start: 20090820, end: 20100412
  3. DOPEGYT [Suspect]
     Indication: HYPERTENSION
     Dosage: 250 MG DAILY, 4.5. - 33.4. GESTATIONAL WEEK), SHORTLY BEFORE BIRTH: 6X250MG
     Route: 064
     Dates: end: 20090922
  4. DOPEGYT [Suspect]
     Dosage: 1500 MG/DAY SHORTLY BEFORE BIRTH
     Route: 064
     Dates: start: 20090922, end: 20100412
  5. UTROGEST [Suspect]
     Indication: ABORTION THREATENED
     Dosage: 100 MG, DAILY; 11. - 14. GESTATIONAL WEEK
     Route: 064
     Dates: start: 20091105, end: 20091126
  6. FOLSAEURE [Concomitant]
     Indication: PROPHYLAXIS OF NEURAL TUBE DEFECT
     Dosage: 0.8 MG/DAY; 5. - 12. GESTATIONAL WEEK
     Route: 064

REACTIONS (4)
  - Maternal exposure during pregnancy [Unknown]
  - Premature baby [Unknown]
  - Small for dates baby [Unknown]
  - Respiratory disorder neonatal [Unknown]
